FAERS Safety Report 20968030 (Version 3)
Quarter: 2022Q3

REPORT INFORMATION
  Report Type: Report from Study
  Country: GB (occurrence: GB)
  Receive Date: 20220616
  Receipt Date: 20220708
  Transmission Date: 20221027
  Serious: Yes (Hospitalization)
  Sender: FDA-Public Use
  Company Number: GB-GLAXOSMITHKLINE-GB2022GSK091867

PATIENT

DRUGS (21)
  1. BELIMUMAB [Suspect]
     Active Substance: BELIMUMAB
     Indication: Vasculitis
     Dosage: 200 MG, WE
     Route: 058
     Dates: start: 20201208, end: 20211130
  2. BELIMUMAB [Suspect]
     Active Substance: BELIMUMAB
     Indication: Vasculitis
     Dosage: 200 MG, WE
     Route: 058
     Dates: start: 20201208, end: 20211130
  3. BELIMUMAB [Suspect]
     Active Substance: BELIMUMAB
     Indication: Vasculitis
     Dosage: 200 MG, WE
     Route: 058
     Dates: start: 20201208, end: 20211130
  4. BELIMUMAB [Suspect]
     Active Substance: BELIMUMAB
     Indication: Vasculitis
     Dosage: 200 MG, WE
     Route: 058
     Dates: start: 20201208, end: 20211130
  5. BELIMUMAB [Suspect]
     Active Substance: BELIMUMAB
     Indication: Vasculitis
     Dosage: 200 MG, WE
     Route: 058
     Dates: start: 20201208, end: 20211130
  6. RITUXIMAB [Suspect]
     Active Substance: RITUXIMAB
     Indication: Vasculitis
     Dosage: 200 MG, WE
     Route: 058
     Dates: start: 20201208, end: 20211130
  7. RITUXIMAB [Suspect]
     Active Substance: RITUXIMAB
     Indication: Vasculitis
     Dosage: 200 MG, WE
     Route: 058
     Dates: start: 20201208, end: 20211130
  8. BELIMUMAB [Suspect]
     Active Substance: BELIMUMAB
     Dosage: 2 MG, SINGLE
     Route: 042
     Dates: start: 20201215, end: 20201229
  9. BELIMUMAB [Suspect]
     Active Substance: BELIMUMAB
     Dosage: 2 MG, SINGLE
     Route: 042
     Dates: start: 20201215, end: 20201229
  10. BELIMUMAB [Suspect]
     Active Substance: BELIMUMAB
     Dosage: 2 MG, SINGLE
     Route: 042
     Dates: start: 20201215, end: 20201229
  11. BELIMUMAB [Suspect]
     Active Substance: BELIMUMAB
     Dosage: 2 MG, SINGLE
     Route: 042
     Dates: start: 20201215, end: 20201229
  12. BELIMUMAB [Suspect]
     Active Substance: BELIMUMAB
     Dosage: 2 MG, SINGLE
     Route: 042
     Dates: start: 20201215, end: 20201229
  13. RITUXIMAB [Suspect]
     Active Substance: RITUXIMAB
     Dosage: 2 MG, SINGLE
     Route: 042
     Dates: start: 20201215, end: 20201229
  14. RITUXIMAB [Suspect]
     Active Substance: RITUXIMAB
     Dosage: 2 MG, SINGLE
     Route: 042
     Dates: start: 20201215, end: 20201229
  15. PREDNISOLONE [Concomitant]
     Active Substance: PREDNISOLONE
     Indication: Product used for unknown indication
     Dosage: 2.5 MG, QD
     Route: 048
     Dates: start: 20210216, end: 20210301
  16. ALLOPURINOL [Concomitant]
     Active Substance: ALLOPURINOL
     Indication: Product used for unknown indication
     Dosage: 300 MG, QD
     Route: 048
     Dates: start: 20210202
  17. FUROSEMIDE [Concomitant]
     Active Substance: FUROSEMIDE
     Indication: Product used for unknown indication
     Dosage: 40 MG, QD
     Route: 048
     Dates: start: 20210717
  18. FUROSEMIDE [Concomitant]
     Active Substance: FUROSEMIDE
     Dosage: 40 MG, Z (ALTERNATE DAYS)
     Route: 048
     Dates: start: 20220526
  19. RAMIPRIL [Concomitant]
     Active Substance: RAMIPRIL
     Indication: Product used for unknown indication
     Dosage: 10 MG, QD
     Route: 048
     Dates: start: 20210717
  20. BISOPROLOL [Concomitant]
     Active Substance: BISOPROLOL
     Indication: Product used for unknown indication
     Dosage: 2.5 MG, QD
     Route: 048
     Dates: start: 20211010
  21. COVID-19 VACCINE [Concomitant]
     Indication: COVID-19
     Dosage: UNK
     Dates: start: 20220526, end: 20220526

REACTIONS (2)
  - Vasculitis [Recovered/Resolved]
  - Disease recurrence [Recovered/Resolved]

NARRATIVE: CASE EVENT DATE: 20220610
